FAERS Safety Report 5467287-8 (Version None)
Quarter: 2007Q3

REPORT INFORMATION
  Report Type: 
  Country: None (occurrence: None)
  Receive Date: 20070925
  Receipt Date: 20070914
  Transmission Date: 20080115
  Serious: Yes (Other)
  Sender: FDA-Public Use
  Company Number: HQWYE226903NOV04

PATIENT
  Sex: Female
  Weight: 52.21 kg

DRUGS (5)
  1. PREMARIN [Suspect]
     Indication: OSTEOPOROSIS
     Dosage: UNKNOWN
     Route: 048
     Dates: start: 19870101, end: 19990101
  2. PREMARIN [Suspect]
     Indication: PROPHYLAXIS
  3. PROVERA [Suspect]
  4. ESTRATEST [Suspect]
  5. ESTRACE [Suspect]

REACTIONS (1)
  - BREAST CANCER [None]
